FAERS Safety Report 9395609 (Version 2)
Quarter: 2013Q3

REPORT INFORMATION
  Report Type: Spontaneous
  Country: US (occurrence: US)
  Receive Date: 20130711
  Receipt Date: 20130717
  Transmission Date: 20140515
  Serious: Yes (Hospitalization, Other)
  Sender: FDA-Public Use
  Company Number: US-SANOFI-AVENTIS-2013SA048762

PATIENT
  Age: 89 Year
  Sex: Female
  Weight: 47 kg

DRUGS (4)
  1. PLAVIX [Suspect]
     Route: 048
     Dates: end: 20130423
  2. PLAVIX [Suspect]
     Route: 048
     Dates: start: 20130522
  3. PLAVIX [Suspect]
     Route: 048
     Dates: start: 20130624
  4. ASPIRIN [Concomitant]
     Dosage: USED ONLY DURING ACUTE PHASES
     Dates: start: 20130522, end: 20130612

REACTIONS (5)
  - Back pain [Unknown]
  - Transient ischaemic attack [Recovered/Resolved]
  - Amnesia [Recovering/Resolving]
  - Petechiae [Unknown]
  - Pruritus [Unknown]
